FAERS Safety Report 22293981 (Version 1)
Quarter: 2023Q2

REPORT INFORMATION
  Report Type: Spontaneous
  Country: US (occurrence: None)
  Receive Date: 20230505
  Receipt Date: 20230505
  Transmission Date: 20230721
  Serious: Yes (Hospitalization)
  Sender: FDA-Public Use
  Company Number: None

PATIENT
  Age: 66 Year
  Sex: Female

DRUGS (16)
  1. AMBRISENTAN [Suspect]
     Active Substance: AMBRISENTAN
     Indication: Pulmonary hypertension
     Dosage: FREQUENCY : DAILY;?
     Route: 048
     Dates: start: 20140827
  2. SILDENAFIL [Concomitant]
  3. DILTIAZEM [Concomitant]
     Active Substance: DILTIAZEM
  4. FUROSEMIDE [Concomitant]
     Active Substance: FUROSEMIDE
  5. ONDANSETRON [Concomitant]
  6. IPRATROPIUM [Concomitant]
     Active Substance: IPRATROPIUM
  7. LACTULOSE [Concomitant]
     Active Substance: LACTULOSE
  8. FOLIC ACID [Concomitant]
  9. VITAMINS [Concomitant]
     Active Substance: VITAMINS
  10. urosdiol [Concomitant]
  11. PHENYTOIN [Concomitant]
  12. LEVOTHYROXINE [Concomitant]
  13. RIFAXIMIN [Concomitant]
  14. ATORVASTATIN [Concomitant]
  15. OMEPRAZOLE [Concomitant]
  16. IRON SUCROSE [Concomitant]
     Active Substance: IRON SUCROSE

REACTIONS (4)
  - Cardiac failure congestive [None]
  - Fall [None]
  - Dizziness [None]
  - Dyspnoea [None]

NARRATIVE: CASE EVENT DATE: 20230328
